FAERS Safety Report 8950743 (Version 2)
Quarter: 2012Q4

REPORT INFORMATION
  Report Type: 
  Country: JP (occurrence: JP)
  Receive Date: 20121207
  Receipt Date: 20121217
  Transmission Date: 20130627
  Serious: Yes (Other)
  Sender: FDA-Public Use
  Company Number: JP-RANBAXY-2012RR-62939

PATIENT
  Age: 29 Year
  Sex: Male

DRUGS (9)
  1. MYCOPHENOLATE MOFETIL [Suspect]
     Indication: IMMUNOSUPPRESSANT DRUG LEVEL
     Dosage: 1000 mg/day
     Route: 065
  2. PREDNISOLONE [Suspect]
     Indication: PRODUCT USED FOR UNKNOWN INDICATION
     Dosage: UNK
     Route: 065
  3. ACICLOVIR [Suspect]
     Indication: PROPHYLAXIS
     Dosage: UNK
     Route: 065
  4. VALGANCICLOVIR [Suspect]
     Indication: CYTOMEGALOVIRUS INFECTION
     Dosage: 450 mg/day
     Route: 065
  5. TACROLIMUS [Suspect]
     Indication: IMMUNOSUPPRESSANT DRUG LEVEL
     Dosage: 4 mg/day
     Route: 065
  6. MYCOPHENOLATE MOFETIL [Concomitant]
     Indication: IMMUNOSUPPRESSANT DRUG LEVEL
     Dosage: 500 mg/day
     Route: 065
  7. TACROLIMUS [Concomitant]
     Indication: IMMUNOSUPPRESSANT DRUG LEVEL
     Dosage: 3.5 mg/day
     Route: 065
  8. TACROLIMUS [Concomitant]
     Indication: IMMUNOSUPPRESSANT DRUG LEVEL
     Dosage: 3 mg/day
     Route: 065
  9. EVEROLIMUS [Concomitant]
     Indication: PRODUCT USED FOR UNKNOWN INDICATION
     Dosage: 1.5 mg/day
     Route: 065

REACTIONS (2)
  - Neutropenia [Recovered/Resolved]
  - Renal impairment [Recovered/Resolved]
